FAERS Safety Report 17397492 (Version 1)
Quarter: 2020Q1

REPORT INFORMATION
  Report Type: Spontaneous
  Country: DE (occurrence: DE)
  Receive Date: 20200210
  Receipt Date: 20200210
  Transmission Date: 20200409
  Serious: Yes (Other)
  Sender: FDA-Public Use
  Company Number: DE-PFIZER INC-2020051274

PATIENT
  Age: 1 Day
  Sex: Male

DRUGS (5)
  1. SERTRALINE HCL [Suspect]
     Active Substance: SERTRALINE HYDROCHLORIDE
     Indication: DEPRESSION
     Dosage: 75 MG/DL, UNK
     Route: 064
  2. LACHGAS [Concomitant]
     Indication: LABOUR PAIN
     Dosage: UNK
     Route: 064
  3. FOLIO FORTE [Concomitant]
     Active Substance: FOLIC ACID\VITAMINS
     Indication: PROPHYLAXIS OF NEURAL TUBE DEFECT
     Dosage: 0.8 MG/DL, UNK
     Route: 064
  4. BUSCOPAN [Concomitant]
     Active Substance: BUTYLSCOPOLAMINE BROMIDE
     Indication: LABOUR PAIN
     Dosage: UNK
     Route: 064
  5. METHYLDOPA. [Suspect]
     Active Substance: METHYLDOPA
     Indication: HYPERTENSION
     Dosage: 375 MG/DL, UNK
     Route: 064

REACTIONS (2)
  - Small for dates baby [Recovering/Resolving]
  - Maternal exposure during pregnancy [Recovering/Resolving]

NARRATIVE: CASE EVENT DATE: 20180324
